FAERS Safety Report 17133847 (Version 1)
Quarter: 2019Q4

REPORT INFORMATION
  Report Type: Spontaneous
  Country: US (occurrence: US)
  Receive Date: 20191209
  Receipt Date: 20191209
  Transmission Date: 20200122
  Serious: No
  Sender: FDA-Public Use
  Company Number: None

PATIENT
  Age: 77 Year
  Sex: Male
  Weight: 49.95 kg

DRUGS (9)
  1. SIMBICORT [Concomitant]
     Active Substance: BUDESONIDE\FORMOTEROL FUMARATE
  2. PROAIR HFA [Concomitant]
     Active Substance: ALBUTEROL SULFATE
  3. FLECAINIDE [Concomitant]
     Active Substance: FLECAINIDE
  4. STOOL SOFTENER (DOCUSATE) [Concomitant]
     Active Substance: DOCUSATE
  5. LAXATIVE [Concomitant]
     Active Substance: UNSPECIFIED INGREDIENT
  6. TYLENOL [Concomitant]
     Active Substance: ACETAMINOPHEN
  7. THEOPHYLLINE [Concomitant]
     Active Substance: THEOPHYLLINE ANHYDROUS
  8. LEVOTHYROXINE. [Suspect]
     Active Substance: LEVOTHYROXINE
     Indication: HYPOTHYROIDISM
     Dosage: ?          QUANTITY:1 TABLET(S);?
     Route: 048
  9. TUDORZA [Concomitant]
     Active Substance: ACLIDINIUM BROMIDE

REACTIONS (5)
  - Tremor [None]
  - Product dispensing error [None]
  - Wrong product administered [None]
  - Muscular weakness [None]
  - Myalgia [None]

NARRATIVE: CASE EVENT DATE: 20191110
